FAERS Safety Report 4539839-0 (Version None)
Quarter: 2004Q4

REPORT INFORMATION
  Report Type: 
  Country: None (occurrence: None)
  Receive Date: 20041222
  Receipt Date: 20041208
  Transmission Date: 20050328
  Serious: Yes (Other)
  Sender: FDA-Public Use
  Company Number: USA041285598

PATIENT
  Age: 35 Year
  Sex: Female
  Weight: 62 kg

DRUGS (2)
  1. HUMALOG [Suspect]
     Dates: start: 19970101
  2. LANTUS [Concomitant]

REACTIONS (5)
  - BLINDNESS [None]
  - DIALYSIS [None]
  - EYE HAEMORRHAGE [None]
  - GLAUCOMA [None]
  - RENAL FAILURE [None]
